FAERS Safety Report 6089804-X (Version None)
Quarter: 2009Q1

REPORT INFORMATION
  Report Type: 
  Country: None (occurrence: None)
  Receive Date: 20090224
  Receipt Date: 20081124
  Transmission Date: 20090719
  Serious: No
  Sender: FDA-Public Use
  Company Number: US-ABBOTT-08P-163-0485052-00

PATIENT
  Sex: Female
  Weight: 60.836 kg

DRUGS (7)
  1. SIMCOR [Suspect]
     Indication: BLOOD TRIGLYCERIDES INCREASED
     Dosage: 500/20 MG AT BEDTIME
     Route: 048
     Dates: start: 20081027
  2. ESTROVEN [Concomitant]
     Indication: DRUG USE FOR UNKNOWN INDICATION
  3. PLANTAGO OVATA [Concomitant]
     Indication: DRUG USE FOR UNKNOWN INDICATION
  4. M.V.I. [Concomitant]
     Indication: DRUG USE FOR UNKNOWN INDICATION
  5. CALCIUM-SANDOZ [Concomitant]
     Indication: DRUG USE FOR UNKNOWN INDICATION
  6. OMEPRAZOLE MAGNESIUM [Concomitant]
     Indication: DRUG USE FOR UNKNOWN INDICATION
  7. ACETYLSALICYLIC ACID SRT [Concomitant]
     Indication: PROPHYLAXIS
     Route: 048
     Dates: start: 20081027

REACTIONS (7)
  - ABDOMINAL PAIN UPPER [None]
  - ANAL PRURITUS [None]
  - DYSPEPSIA [None]
  - FLATULENCE [None]
  - HAEMATOCHEZIA [None]
  - NAUSEA [None]
  - VOMITING [None]
